FAERS Safety Report 7655041-8 (Version None)
Quarter: 2011Q3

REPORT INFORMATION
  Report Type: 
  Country: None (occurrence: None)
  Receive Date: 20110728
  Receipt Date: 20110715
  Transmission Date: 20111222
  Serious: Yes (Death)
  Sender: FDA-Public Use
  Company Number: 21472

PATIENT
  Age: 82 Year
  Sex: Female

DRUGS (3)
  1. PANADEINE FORTE (PARACETAMOL, CODEINE PHOSPHATE) [Concomitant]
  2. IBUPROFEN [Suspect]
     Indication: BACK PAIN
     Dosage: ORAL
     Route: 048
     Dates: start: 20110101, end: 20110201
  3. ACETAMINOPHEN [Concomitant]

REACTIONS (5)
  - HAEMOTHORAX [None]
  - GASTROINTESTINAL HAEMORRHAGE [None]
  - CARDIAC FAILURE [None]
  - CARDIAC FUNCTION DISTURBANCE POSTOPERATIVE [None]
  - GASTRIC ULCER PERFORATION [None]
